FAERS Safety Report 5302965-2 (Version None)
Quarter: 2007Q2

REPORT INFORMATION
  Report Type: 
  Country: None (occurrence: None)
  Receive Date: 20070420
  Receipt Date: 20070412
  Transmission Date: 20071010
  Serious: Yes (Hospitalization)
  Sender: FDA-Public Use
  Company Number: JP-JNJFOC-20070304108

PATIENT
  Sex: Female
  Weight: 49 kg

DRUGS (17)
  1. REMICADE [Suspect]
     Dosage: 3, 6 OR 10 MG/KG
     Route: 042
  2. REMICADE [Suspect]
     Dosage: 3, 6 OR 10 MG/KG
     Route: 042
  3. REMICADE [Suspect]
     Dosage: 3, 6 OR 10 MG/KG
     Route: 042
  4. REMICADE [Suspect]
     Dosage: 3, 6 OR 10 MG/KG
     Route: 042
  5. REMICADE [Suspect]
     Dosage: 3, 6 OR 10 MG/KG
     Route: 042
  6. REMICADE [Suspect]
     Route: 042
  7. REMICADE [Suspect]
     Route: 042
  8. REMICADE [Suspect]
     Indication: RHEUMATOID ARTHRITIS
     Route: 042
  9. VOLTAREN [Concomitant]
     Indication: RHEUMATOID ARTHRITIS
  10. PREDNISOLONE [Concomitant]
     Indication: RHEUMATOID ARTHRITIS
     Dosage: 5 MG/DAY IN 2 DIVIDED DOSES
     Route: 048
     Dates: start: 20021212
  11. KETOPROFEN [Concomitant]
     Indication: RHEUMATOID ARTHRITIS
     Dosage: 0.5 SHEET/DAY
     Route: 061
  12. MARZULENE S [Concomitant]
     Indication: GASTROINTESTINAL DISORDER THERAPY
     Dosage: 1.34 G/DAY, IN 2 DIVIDED DOSES
     Route: 048
  13. METHOTREXATE [Concomitant]
     Indication: RHEUMATOID ARTHRITIS
     Dosage: 6 MG/WEEK, DIVIDED ON SATURDAYS AND SUNDAYS.
     Dates: start: 20051215, end: 20070315
  14. KETOPROFEN [Concomitant]
     Indication: RHEUMATOID ARTHRITIS
     Dosage: 0.5 SHEET/DAY; START DATE: ^BEFORE 15-FEB-06^.
     Route: 061
  15. MAGNESIUM OXIDE [Concomitant]
     Route: 048
  16. MAGNESIUM OXIDE [Concomitant]
     Indication: CONSTIPATION
     Route: 048
  17. OHTA-ISAN [Concomitant]
     Indication: HANGOVER
     Route: 048

REACTIONS (7)
  - ASCITES [None]
  - HEPATIC FUNCTION ABNORMAL [None]
  - HEPATITIS [None]
  - OEDEMA [None]
  - PERICARDIAL EFFUSION [None]
  - PERICARDITIS [None]
  - PLEURAL EFFUSION [None]
